FAERS Safety Report 21126103 (Version 1)
Quarter: 2022Q3

REPORT INFORMATION
  Report Type: Spontaneous
  Country: US (occurrence: None)
  Receive Date: 20220724
  Receipt Date: 20220724
  Transmission Date: 20221026
  Serious: No
  Sender: FDA-Public Use
  Company Number: None

PATIENT
  Age: 61 Year
  Sex: Female
  Weight: 50.85 kg

DRUGS (9)
  1. IBANDRONATE SODIUM [Suspect]
     Active Substance: IBANDRONATE SODIUM
     Indication: Osteoporosis
     Dosage: OTHER QUANTITY : 3 CAPSULE(S);?OTHER FREQUENCY : ONCE A MONTH;?
     Route: 048
     Dates: start: 20220719, end: 20220719
  2. GABAPENTIN [Concomitant]
     Active Substance: GABAPENTIN
  3. TYLENOL [Concomitant]
     Active Substance: ACETAMINOPHEN
  4. CALCIUM [Concomitant]
     Active Substance: CALCIUM
  5. OMEGA 3 WITH COQ10 [Concomitant]
  6. HERBALS\SPIRULINA [Concomitant]
     Active Substance: HERBALS\SPIRULINA
  7. VITAMIN D [Concomitant]
     Active Substance: VITAMIN D NOS
  8. PEPCID [Concomitant]
     Active Substance: FAMOTIDINE
  9. BENADRYL [Concomitant]
     Active Substance: DIPHENHYDRAMINE HYDROCHLORIDE

REACTIONS (8)
  - Foreign body in throat [None]
  - Gastrooesophageal reflux disease [None]
  - Nausea [None]
  - Myalgia [None]
  - Arthralgia [None]
  - Rhinorrhoea [None]
  - Insomnia [None]
  - Mobility decreased [None]

NARRATIVE: CASE EVENT DATE: 20220719
